FAERS Safety Report 7993133-4 (Version None)
Quarter: 2011Q4

REPORT INFORMATION
  Report Type: 
  Country: None (occurrence: None)
  Receive Date: 20111219
  Receipt Date: 20110303
  Transmission Date: 20120403
  Serious: No
  Sender: FDA-Public Use
  Company Number: US-ASTRAZENECA-2011SE12036

PATIENT
  Age: 79 Year
  Sex: Female

DRUGS (4)
  1. AMLODIPINE/VALSATRAN [Concomitant]
     Indication: BLOOD PRESSURE
  2. BRIMONIDINE TARTRATE/TIMOLOL [Concomitant]
     Indication: OCULAR HYPERTENSION
  3. CRESTOR [Suspect]
     Route: 048
     Dates: start: 20070101
  4. CLONAZEPAM [Concomitant]
     Indication: INSOMNIA

REACTIONS (4)
  - GINGIVAL SWELLING [None]
  - FACE OEDEMA [None]
  - ARTHRITIS [None]
  - DYSKINESIA [None]
